FAERS Safety Report 12877820 (Version 1)
Quarter: 2016Q4

REPORT INFORMATION
  Report Type: Spontaneous
  Country: IN (occurrence: IN)
  Receive Date: 20161024
  Receipt Date: 20161024
  Transmission Date: 20170207
  Serious: Yes (Hospitalization, Other)
  Sender: FDA-Public Use
  Company Number: IN-SCIEGEN PHARMACEUTICALS INC-2016SCILIT00505

PATIENT
  Age: 57 Year
  Sex: Male

DRUGS (4)
  1. LOSARTAN. [Suspect]
     Active Substance: LOSARTAN
     Indication: PRODUCT USED FOR UNKNOWN INDICATION
     Dosage: 50 MG, UNK
     Route: 065
  2. METFORMIN [Suspect]
     Active Substance: METFORMIN HYDROCHLORIDE
     Indication: PRODUCT USED FOR UNKNOWN INDICATION
     Dosage: 1 G, UNK
     Route: 065
  3. CARISOPRODOL TABLETS [Suspect]
     Active Substance: CARISOPRODOL
     Indication: ARTHRALGIA
     Dosage: (6-7 TABLETS) DAILY
     Route: 065
  4. ELTROXIN [Suspect]
     Active Substance: LEVOTHYROXINE
     Indication: PRODUCT USED FOR UNKNOWN INDICATION
     Dosage: 0.75 MG, UNK
     Route: 065

REACTIONS (25)
  - Insomnia [Unknown]
  - Muscle rigidity [Recovering/Resolving]
  - Drug abuse [None]
  - Hallucination, visual [Unknown]
  - Depressed level of consciousness [Unknown]
  - Leukocytosis [Unknown]
  - Alcohol withdrawal syndrome [Unknown]
  - Tachycardia [Unknown]
  - Hyperhidrosis [Unknown]
  - Blood lactate dehydrogenase increased [Recovering/Resolving]
  - Blood urea abnormal [Recovering/Resolving]
  - Autonomic nervous system imbalance [Unknown]
  - Overdose [None]
  - Disorganised speech [Unknown]
  - Restlessness [Unknown]
  - Tachypnoea [Unknown]
  - Neuroleptic malignant syndrome [Unknown]
  - Blood creatine phosphokinase increased [Recovering/Resolving]
  - Metabolic acidosis [Unknown]
  - Pyrexia [Unknown]
  - Aspartate aminotransferase increased [Unknown]
  - Alanine aminotransferase increased [Recovering/Resolving]
  - Pulmonary embolism [Unknown]
  - Myoclonus [Recovering/Resolving]
  - Delirium [None]
